FAERS Safety Report 20160573 (Version 1)
Quarter: 2021Q4

REPORT INFORMATION
  Report Type: Spontaneous
  Country: US (occurrence: US)
  Receive Date: 20211208
  Receipt Date: 20211208
  Transmission Date: 20220303
  Serious: Yes (Hospitalization)
  Sender: FDA-Public Use
  Company Number: US-BoehringerIngelheim-2021-BI-142258

PATIENT
  Age: 66 Year
  Sex: Male
  Weight: 63 kg

DRUGS (9)
  1. DUOPA [Suspect]
     Active Substance: CARBIDOPA\LEVODOPA
     Indication: Parkinson^s disease
     Dosage: ROUTE OF ADMIN: PERCUTANEOUS J-TUBE
     Dates: start: 202106, end: 20211116
  2. DUOPA [Suspect]
     Active Substance: CARBIDOPA\LEVODOPA
     Dosage: PERCUTANEOUS J-TUBE
     Dates: start: 20211127
  3. SINEMET [Suspect]
     Active Substance: CARBIDOPA\LEVODOPA
     Indication: Parkinson^s disease
  4. MODERNA COVID-19 VACCINE [Suspect]
     Active Substance: ELASOMERAN
     Indication: COVID-19 immunisation
     Route: 030
     Dates: start: 20210226, end: 20210226
  5. MODERNA COVID-19 VACCINE [Suspect]
     Active Substance: ELASOMERAN
     Route: 030
     Dates: start: 20210326, end: 20210326
  6. MIRAPEX [Suspect]
     Active Substance: PRAMIPEXOLE DIHYDROCHLORIDE
     Indication: Parkinson^s disease
     Dates: start: 2021, end: 2021
  7. SOLIQUA 100/33 [Concomitant]
     Active Substance: INSULIN GLARGINE\LIXISENATIDE
     Indication: Diabetes mellitus
     Route: 050
  8. LISINOPRIL [Concomitant]
     Active Substance: LISINOPRIL
     Indication: Hypertension
  9. QUETIAPINE [Concomitant]
     Active Substance: QUETIAPINE
     Indication: Parkinson^s disease

REACTIONS (11)
  - Thrombosis [Recovered/Resolved]
  - Blood magnesium decreased [Recovered/Resolved]
  - Fibrin D dimer increased [Unknown]
  - Hallucination [Unknown]
  - Device leakage [Unknown]
  - Device issue [Unknown]
  - Weight decreased [Unknown]
  - Nausea [Recovered/Resolved]
  - Vomiting [Recovered/Resolved]
  - Stoma site haemorrhage [Recovered/Resolved]
  - Stoma site haemorrhage [Unknown]

NARRATIVE: CASE EVENT DATE: 20210101
